FAERS Safety Report 15265254 (Version 1)
Quarter: 2018Q4

REPORT INFORMATION
  Report Type: Spontaneous
  Country: US (occurrence: US)
  Receive Date: 20180810
  Receipt Date: 20180810
  Transmission Date: 20190204
  Serious: No
  Sender: FDA-Public Use
  Company Number: US-SA-2018SA211757

PATIENT
  Sex: Female
  Weight: 52 kg

DRUGS (2)
  1. PROTONIX (OMEPRAZOLE) [Suspect]
     Active Substance: OMEPRAZOLE
     Indication: DYSPEPSIA
     Dosage: 80 MG, QD
     Route: 065
  2. ZANTAC [Suspect]
     Active Substance: RANITIDINE HYDROCHLORIDE
     Indication: DYSPEPSIA
     Dosage: 600 MG, QD
     Route: 065

REACTIONS (1)
  - Drug ineffective [Unknown]
